FAERS Safety Report 10335993 (Version 1)
Quarter: 2014Q3

REPORT INFORMATION
  Report Type: Spontaneous
  Country: US (occurrence: US)
  Receive Date: 20140723
  Receipt Date: 20140723
  Transmission Date: 20150326
  Serious: No
  Sender: FDA-Public Use
  Company Number: US-BRISTOL-MYERS SQUIBB COMPANY-19443324

PATIENT
  Age: 85 Year
  Sex: Female
  Weight: 52.15 kg

DRUGS (5)
  1. FUROSEMIDE. [Concomitant]
     Active Substance: FUROSEMIDE
     Dosage: DOSAGE: IN THE MORNING
  2. WARFARIN SODIUM. [Suspect]
     Active Substance: WARFARIN SODIUM
     Dosage: 1 DF:TWO AND HALF 2.5MG TABS ON MON,WED,FRI?2.5MG TABS ON TUE,THU,SAT,SUN
  3. DIGOXIN. [Concomitant]
     Active Substance: DIGOXIN
     Dosage: DOSAGE: ONCE IN THE MORNING
  4. PRAVASTATIN [Concomitant]
     Active Substance: PRAVASTATIN\PRAVASTATIN SODIUM
  5. ATENOLOL. [Concomitant]
     Active Substance: ATENOLOL

REACTIONS (1)
  - International normalised ratio fluctuation [Unknown]
